FAERS Safety Report 7219428-X (Version None)
Quarter: 2011Q1

REPORT INFORMATION
  Report Type: 
  Country: None (occurrence: None)
  Receive Date: 20110111
  Receipt Date: 20101231
  Transmission Date: 20110831
  Serious: No
  Sender: FDA-Public Use
  Company Number: US-PFIZER INC-2011001558

PATIENT
  Age: 31 Year
  Sex: Male
  Weight: 86.168 kg

DRUGS (1)
  1. LORATADINE AND PSEUDOEPHEDRINE SULFATE [Suspect]
     Dosage: 1 TABLET TWICE DAILY
     Route: 048
     Dates: start: 20101228, end: 20101230

REACTIONS (1)
  - DRUG INEFFECTIVE [None]
